FAERS Safety Report 24250894 (Version 1)
Quarter: 2024Q3

REPORT INFORMATION
  Report Type: Spontaneous
  Country: US (occurrence: None)
  Receive Date: 20240826
  Receipt Date: 20240826
  Transmission Date: 20241017
  Serious: Yes (Hospitalization)
  Sender: Public
  Company Number: None

PATIENT
  Age: 58 Year
  Sex: Female

DRUGS (1)
  1. GLATIRAMER ACETATE [Suspect]
     Active Substance: GLATIRAMER ACETATE
     Indication: Multiple sclerosis
     Dosage: FREQUENCY : 3 TIMES A WEEK;?

REACTIONS (6)
  - Injection site reaction [None]
  - Injection site inflammation [None]
  - Spinal fusion surgery [None]
  - Therapy interrupted [None]
  - Cervical cord compression [None]
  - Musculoskeletal disorder [None]

NARRATIVE: CASE EVENT DATE: 20240806
